FAERS Safety Report 15492610 (Version 2)
Quarter: 2018Q4

REPORT INFORMATION
  Report Type: Spontaneous
  Country: CA (occurrence: CA)
  Receive Date: 20181012
  Receipt Date: 20181025
  Transmission Date: 20190205
  Serious: Yes (Life-Threatening, Hospitalization, Other)
  Sender: FDA-Public Use
  Company Number: CA-BAUSCH-BL-2018-027992

PATIENT
  Age: 10 Year
  Sex: Female

DRUGS (1)
  1. BENZACLIN [Suspect]
     Active Substance: BENZOYL PEROXIDE\CLINDAMYCIN PHOSPHATE
     Indication: ACNE
     Route: 061

REACTIONS (1)
  - Dermatitis contact [Recovering/Resolving]
